FAERS Safety Report 9752614 (Version 1)
Quarter: 2013Q4

REPORT INFORMATION
  Report Type: Report from Study
  Country: PL (occurrence: PL)
  Receive Date: 20131213
  Receipt Date: 20131213
  Transmission Date: 20140711
  Serious: Yes (Other)
  Sender: FDA-Public Use
  Company Number: PL-ROCHE-1316442

PATIENT
  Age: 52 Year
  Sex: Male

DRUGS (5)
  1. PEG-INTERFERON ALFA 2A [Suspect]
     Indication: CHRONIC HEPATITIS C
     Route: 058
     Dates: start: 20130731
  2. RIBAVIRIN [Suspect]
     Indication: CHRONIC HEPATITIS C
     Route: 048
     Dates: start: 20130731, end: 20131016
  3. BLINDED PEG-INTERFERON LAMBDA [Suspect]
     Indication: CHRONIC HEPATITIS C
     Route: 058
     Dates: start: 20130731, end: 20131011
  4. TELAPREVIR [Suspect]
     Indication: CHRONIC HEPATITIS C
     Route: 048
     Dates: start: 20130731, end: 20131014
  5. GLICLAZIDE [Concomitant]
     Route: 065
     Dates: start: 2008

REACTIONS (1)
  - Jaundice [Recovering/Resolving]
